FAERS Safety Report 7757458-X (Version None)
Quarter: 2011Q3

REPORT INFORMATION
  Report Type: 
  Country: None (occurrence: None)
  Receive Date: 20110916
  Receipt Date: 20110310
  Transmission Date: 20111222
  Serious: No
  Sender: FDA-Public Use
  Company Number: US-BAYER-2011-022137

PATIENT
  Age: 58 Year
  Sex: Male
  Weight: 108.84 kg

DRUGS (2)
  1. ULTRAVIST 150 [Suspect]
     Indication: COMPUTERISED TOMOGRAM
     Dosage: 100 ML, UNK
     Route: 042
     Dates: start: 20110310
  2. AVAPRO [Concomitant]

REACTIONS (6)
  - VOMITING [None]
  - DYSPHAGIA [None]
  - EYE SWELLING [None]
  - NAUSEA [None]
  - URTICARIA [None]
  - ERYTHEMA [None]
